FAERS Safety Report 4979870-4 (Version None)
Quarter: 2006Q2

REPORT INFORMATION
  Report Type: 
  Country: None (occurrence: None)
  Receive Date: 20060421
  Receipt Date: 20050309
  Transmission Date: 20061013
  Serious: Yes (Hospitalization)
  Sender: FDA-Public Use
  Company Number: US-MERCK-0503USA01672

PATIENT
  Age: 67 Year
  Sex: Male
  Weight: 64 kg

DRUGS (3)
  1. AMBIEN [Concomitant]
     Indication: SLEEP DISORDER
     Route: 065
  2. ASPIRIN [Concomitant]
     Route: 065
  3. VIOXX [Suspect]
     Indication: ARTHROPATHY
     Route: 048
     Dates: start: 19990101, end: 20020101

REACTIONS (15)
  - ACUTE MYOCARDIAL INFARCTION [None]
  - ATELECTASIS [None]
  - CARDIAC DISORDER [None]
  - CARDIOMEGALY [None]
  - CEREBROVASCULAR DISORDER [None]
  - COLOSTOMY [None]
  - CORONARY ARTERY DISEASE [None]
  - DIARRHOEA [None]
  - DIZZINESS [None]
  - GASTROENTERITIS [None]
  - HEADACHE [None]
  - HERNIA [None]
  - MUSCULOSKELETAL CHEST PAIN [None]
  - PLEURAL EFFUSION [None]
  - VOMITING [None]
